FAERS Safety Report 17405795 (Version 2)
Quarter: 2020Q1

REPORT INFORMATION
  Report Type: Spontaneous
  Country: AU (occurrence: AU)
  Receive Date: 20200212
  Receipt Date: 20200327
  Transmission Date: 20200409
  Serious: Yes (Other)
  Sender: FDA-Public Use
  Company Number: AU-BRISTOL-MYERS SQUIBB COMPANY-BMS-2020-011004

PATIENT
  Age: 83 Year
  Sex: Female
  Weight: 60 kg

DRUGS (2)
  1. ELIQUIS [Suspect]
     Active Substance: APIXABAN
     Indication: CEREBROVASCULAR ACCIDENT PROPHYLAXIS
     Dosage: 2.5 MILLIGRAM, BID
     Route: 065
  2. DIGOXIN. [Concomitant]
     Active Substance: DIGOXIN
     Indication: CARDIAC DISORDER
     Dosage: UNK, BID
     Route: 065

REACTIONS (6)
  - Lacrimation increased [Recovering/Resolving]
  - Vision blurred [Recovering/Resolving]
  - Polyp [Unknown]
  - Cyst [Unknown]
  - Ocular hyperaemia [Recovering/Resolving]
  - Adverse drug reaction [Unknown]
